FAERS Safety Report 18406500 (Version 3)
Quarter: 2020Q4

REPORT INFORMATION
  Report Type: Spontaneous
  Country: IN (occurrence: IN)
  Receive Date: 20201020
  Receipt Date: 20201104
  Transmission Date: 20210114
  Serious: Yes (Life-Threatening, Hospitalization, Other)
  Sender: FDA-Public Use
  Company Number: IN-PFIZER INC-2020404281

PATIENT
  Age: 23 Year
  Sex: Female

DRUGS (2)
  1. METOPROLOL SUCCINATE. [Suspect]
     Active Substance: METOPROLOL SUCCINATE
     Dosage: 50 MG (60 TABLETS OF METOPROLOL SUCCINATE)
  2. AMLODIPINE BESILATE [Suspect]
     Active Substance: AMLODIPINE BESYLATE
     Dosage: 5 MG (60 TABLETS OF AMLODIPINE 5 MG.)

REACTIONS (8)
  - Multiple organ dysfunction syndrome [Unknown]
  - Respiratory failure [Unknown]
  - Sinus bradycardia [Unknown]
  - Overdose [Unknown]
  - Toxicity to various agents [Unknown]
  - Lactic acidosis [Unknown]
  - Cardiogenic shock [Unknown]
  - Anuria [Unknown]
